FAERS Safety Report 16680784 (Version 1)
Quarter: 2019Q3

REPORT INFORMATION
  Report Type: Report from Study
  Country: None (occurrence: AR)
  Receive Date: 20190808
  Receipt Date: 20190808
  Transmission Date: 20191004
  Serious: Yes (Other)
  Sender: FDA-Public Use
  Company Number: AR-ABBVIE-19K-007-2880327-00

PATIENT
  Sex: Female

DRUGS (1)
  1. HUMIRA [Suspect]
     Active Substance: ADALIMUMAB
     Indication: RHEUMATOID ARTHRITIS
     Route: 058
     Dates: start: 20180101

REACTIONS (9)
  - Malaise [Unknown]
  - Medical device site joint discomfort [Unknown]
  - Eye swelling [Unknown]
  - Eye pain [Unknown]
  - Arthralgia [Not Recovered/Not Resolved]
  - Eye irritation [Unknown]
  - Eye disorder [Not Recovered/Not Resolved]
  - Lacrimal disorder [Unknown]
  - Eye discharge [Unknown]
